FAERS Safety Report 9325932 (Version 2)
Quarter: 2013Q4

REPORT INFORMATION
  Report Type: Spontaneous
  Country: US (occurrence: US)
  Receive Date: 20130604
  Receipt Date: 20131202
  Transmission Date: 20140711
  Serious: Yes (Other)
  Sender: FDA-Public Use
  Company Number: US-PFIZER INC-2013166961

PATIENT
  Age: 75 Year
  Sex: Male

DRUGS (8)
  1. XELJANZ [Suspect]
     Indication: RHEUMATOID ARTHRITIS
     Dosage: 5 MG, 2X/DAY
     Route: 048
     Dates: start: 201301
  2. XELJANZ [Suspect]
     Dosage: 5 MG, 2X/DAY
     Route: 048
     Dates: start: 201301
  3. FUROSEMIDE [Concomitant]
     Dosage: 40 MG, UNK
  4. PREDNISONE [Concomitant]
     Dosage: 5 MG, UNK
  5. METOPROLOL TARTRATE [Concomitant]
     Dosage: 50 MG, UNK
  6. FOLIC ACID [Concomitant]
     Dosage: 1 MG, UNK
  7. LISINOPRIL [Concomitant]
     Dosage: 20 MG, UNK
  8. WARFARIN SODIUM [Concomitant]
     Dosage: 2.5 MG, UNK

REACTIONS (3)
  - Gait disturbance [Unknown]
  - Activities of daily living impaired [Unknown]
  - Pain [Not Recovered/Not Resolved]
